FAERS Safety Report 9926191 (Version 1)
Quarter: 2014Q1

REPORT INFORMATION
  Report Type: Spontaneous
  Country: ES (occurrence: ES)
  Receive Date: 20140226
  Receipt Date: 20140226
  Transmission Date: 20141002
  Serious: Yes (Hospitalization)
  Sender: FDA-Public Use
  Company Number: ES-BRISTOL-MYERS SQUIBB COMPANY-20294187

PATIENT
  Age: 83 Year
  Sex: Female

DRUGS (5)
  1. ONGLYZA TABS [Suspect]
     Route: 048
     Dates: start: 201303
  2. GEMFIBROZIL [Concomitant]
     Indication: HYPERLIPIDAEMIA
     Route: 048
  3. NEBIVOLOL [Concomitant]
     Route: 048
  4. RAMIPRIL [Concomitant]
     Route: 048
  5. METFORMIN HCL [Concomitant]
     Route: 048

REACTIONS (1)
  - Hypertransaminasaemia [Recovered/Resolved]
